FAERS Safety Report 18635643 (Version 1)
Quarter: 2020Q4

REPORT INFORMATION
  Report Type: Spontaneous
  Country: US (occurrence: US)
  Receive Date: 20201218
  Receipt Date: 20201218
  Transmission Date: 20210114
  Serious: No
  Sender: FDA-Public Use
  Company Number: US-THERAPEUTICSMD-2020TMD03671

PATIENT
  Age: 67 Year
  Sex: Female
  Weight: 69.39 kg

DRUGS (9)
  1. IMVEXXY [Suspect]
     Active Substance: ESTRADIOL
     Dosage: 4 ?G, 1X/DAY BEFORE BED
     Route: 067
     Dates: start: 202008, end: 202008
  2. METOPROLOL. [Concomitant]
     Active Substance: METOPROLOL
  3. VENLAFAXINE [Concomitant]
     Active Substance: VENLAFAXINE HYDROCHLORIDE
  4. FISH OIL [Concomitant]
     Active Substance: FISH OIL
  5. OSTEO BI-FLEX [Concomitant]
     Active Substance: CHONDROITIN SULFATE A\GLUCOSAMINE
  6. FLUTICASONE. [Concomitant]
     Active Substance: FLUTICASONE
  7. PRAVASTATIN. [Concomitant]
     Active Substance: PRAVASTATIN
  8. FENOFIBRATE. [Concomitant]
     Active Substance: FENOFIBRATE
  9. IMVEXXY [Suspect]
     Active Substance: ESTRADIOL
     Indication: OESTROGEN DEFICIENCY
     Dosage: 4 ?G, 1X/DAY BEFORE BED
     Route: 067
     Dates: start: 202008, end: 202008

REACTIONS (2)
  - Off label use [Recovered/Resolved]
  - Vulvovaginal swelling [Recovered/Resolved]

NARRATIVE: CASE EVENT DATE: 202008
